FAERS Safety Report 24972416 (Version 2)
Quarter: 2025Q3

REPORT INFORMATION
  Report Type: Spontaneous
  Country: CA (occurrence: None)
  Receive Date: 20250215
  Receipt Date: 20250816
  Transmission Date: 20251021
  Serious: No
  Sender: ALEXION PHARMACEUTICALS
  Company Number: CA-AstraZeneca-2002UW13257

PATIENT
  Age: 42 Year
  Sex: Male

DRUGS (1)
  1. NEXIUM [Suspect]
     Active Substance: ESOMEPRAZOLE MAGNESIUM
     Indication: Gastrooesophageal reflux disease
     Dosage: 40 MILLIGRAM, QD
     Dates: end: 20020920

REACTIONS (1)
  - Tinnitus [Unknown]

NARRATIVE: CASE EVENT DATE: 20020903
